FAERS Safety Report 21009250 (Version 2)
Quarter: 2022Q3

REPORT INFORMATION
  Report Type: Spontaneous
  Country: US (occurrence: US)
  Receive Date: 20220627
  Receipt Date: 20220715
  Transmission Date: 20221027
  Serious: Yes (Other)
  Sender: FDA-Public Use
  Company Number: US-BAYER-2022A087383

PATIENT
  Age: 44 Year
  Sex: Female
  Weight: 92.971 kg

DRUGS (4)
  1. MIRENA [Suspect]
     Active Substance: LEVONORGESTREL
     Indication: Contraception
     Dosage: 20?G/DAY
     Route: 015
     Dates: start: 20220406, end: 20220628
  2. BIOTIN [Concomitant]
     Active Substance: BIOTIN
     Dosage: UNK
     Route: 048
  3. LEVOTHYROXINE [Concomitant]
     Active Substance: LEVOTHYROXINE
     Route: 048
  4. TYLENOL [Concomitant]
     Active Substance: ACETAMINOPHEN
     Indication: Pain prophylaxis
     Dosage: UNK
     Dates: start: 20220628, end: 20220628

REACTIONS (5)
  - Post procedural haemorrhage [Recovered/Resolved]
  - Device dislocation [Recovered/Resolved]
  - Pelvic pain [None]
  - Heavy menstrual bleeding [None]
  - Uterine leiomyoma [None]

NARRATIVE: CASE EVENT DATE: 20220420
